FAERS Safety Report 6969760-X (Version None)
Quarter: 2010Q3

REPORT INFORMATION
  Report Type: 
  Country: None (occurrence: None)
  Receive Date: 20100908
  Receipt Date: 20100830
  Transmission Date: 20110219
  Serious: No
  Sender: FDA-Public Use
  Company Number: US-BIOGENIDEC-2010BI025640

PATIENT
  Age: 44 Year
  Sex: Female

DRUGS (3)
  1. TYSABRI [Suspect]
     Indication: MULTIPLE SCLEROSIS
     Route: 042
     Dates: start: 20100714
  2. INDERAL [Concomitant]
     Indication: HYPERTENSION
  3. ULTRAM [Concomitant]
     Indication: PAIN IN EXTREMITY

REACTIONS (7)
  - BURNING SENSATION [None]
  - FALL [None]
  - HEADACHE [None]
  - HYPOAESTHESIA [None]
  - PAIN IN EXTREMITY [None]
  - PARAESTHESIA [None]
  - TREMOR [None]
